FAERS Safety Report 11635593 (Version 3)
Quarter: 2015Q4

REPORT INFORMATION
  Report Type: Spontaneous
  Country: PR (occurrence: PR)
  Receive Date: 20151016
  Receipt Date: 20151124
  Transmission Date: 20160304
  Serious: No
  Sender: FDA-Public Use
  Company Number: PR-PFIZER INC-2015327890

PATIENT
  Age: 45 Year
  Sex: Male
  Weight: 64 kg

DRUGS (5)
  1. METOPROLOL [Concomitant]
     Active Substance: METOPROLOL
     Dosage: 25 MG, UNK
  2. SUTENT [Suspect]
     Active Substance: SUNITINIB MALATE
     Dosage: UNK
  3. SUTENT [Suspect]
     Active Substance: SUNITINIB MALATE
     Indication: RENAL CANCER
     Dosage: 50 MG, DAILY
     Route: 048
     Dates: start: 20150929, end: 20151104
  4. MINOCYCLINE\MINOCYCLINE HYDROCHLORIDE [Concomitant]
     Active Substance: MINOCYCLINE\MINOCYCLINE HYDROCHLORIDE
     Dosage: 100 MG, UNK
  5. FENTANYL. [Concomitant]
     Active Substance: FENTANYL
     Dosage: 50 ?G, UNK
     Route: 062

REACTIONS (7)
  - Rash [Recovered/Resolved]
  - Peripheral swelling [Unknown]
  - Dysphagia [Unknown]
  - Pain [Unknown]
  - Swollen tongue [Unknown]
  - Pharyngeal inflammation [Unknown]
  - Neck pain [Unknown]

NARRATIVE: CASE EVENT DATE: 20151003
